FAERS Safety Report 25972155 (Version 3)
Quarter: 2025Q4

REPORT INFORMATION
  Report Type: Report from Study
  Country: EU (occurrence: EU)
  Receive Date: 20251029
  Receipt Date: 20251230
  Transmission Date: 20260118
  Serious: Yes (Hospitalization, Disabling, Other)
  Sender: NOVARTIS
  Company Number: EU-002147023-NVSC2025DE133565

PATIENT
  Age: 68 Year
  Sex: Male
  Weight: 97 kg

DRUGS (16)
  1. PLUVICTO [Suspect]
     Active Substance: LUTETIUM LU-177 VIPIVOTIDE TETRAXETAN
     Indication: Hormone-refractory prostate cancer
     Dosage: 7400 MBQ, ONCE/SINGLE
     Route: 042
     Dates: start: 20250728, end: 20250728
  2. DENOSUMAB [Concomitant]
     Active Substance: DENOSUMAB
     Indication: Prophylaxis
     Dosage: 120 MG (EVERY 4 WEEKS, NEXT ON 28 AUGUST)
     Route: 065
  3. GONADORELIN DIACETATE TETRAHYDRATE [Concomitant]
     Active Substance: GONADORELIN DIACETATE TETRAHYDRATE
     Indication: Product used for unknown indication
     Dosage: UNK (ANALOGUE)
     Route: 065
  4. Novalgin [Concomitant]
     Indication: Product used for unknown indication
     Dosage: UNK (DROPS, 40?-40?-40?)
     Route: 065
  5. METHADONE [Concomitant]
     Active Substance: METHADONE HYDROCHLORIDE
     Indication: Product used for unknown indication
     Dosage: UNK (10?-15?-15?-10?)
     Route: 065
  6. HALOP [Concomitant]
     Indication: Product used for unknown indication
     Dosage: 2 MILLIGRAM PER MILLILITRE (3?-0-0-3?)
     Route: 065
  7. PREGABALIN [Concomitant]
     Active Substance: PREGABALIN
     Indication: Product used for unknown indication
     Dosage: 75 MG, QD (0-0-0-1)
     Route: 065
  8. DIAZ [Concomitant]
     Indication: Product used for unknown indication
     Dosage: 10 MILLIGRAM PER MILLILITRE, QD
     Route: 065
  9. PREDNISOLONE [Concomitant]
     Active Substance: PREDNISOLONE
     Indication: Product used for unknown indication
     Dosage: 5 MG, QD
     Route: 065
  10. CHOLECALCIFEROL [Concomitant]
     Active Substance: CHOLECALCIFEROL
     Indication: Product used for unknown indication
     Dosage: 500 MG/400 IU, QD
     Route: 065
  11. METFORMIN [Concomitant]
     Active Substance: METFORMIN HYDROCHLORIDE
     Indication: Product used for unknown indication
     Dosage: 1000 MG, QD (0.5-0-0.5-0)
     Route: 065
  12. RAMIPRIL [Concomitant]
     Active Substance: RAMIPRIL
     Indication: Product used for unknown indication
     Dosage: 10/5 MG, QD
     Route: 065
  13. PANTOPRAZOLE [Concomitant]
     Active Substance: PANTOPRAZOLE
     Indication: Product used for unknown indication
     Dosage: 20 MG, QD
     Route: 065
  14. INDAPAMIDE [Concomitant]
     Active Substance: INDAPAMIDE
     Indication: Product used for unknown indication
     Dosage: 1.5 MG, QD
     Route: 065
  15. ABIRATERONE [Concomitant]
     Active Substance: ABIRATERONE
     Indication: Product used for unknown indication
     Dosage: 500 MG, QD
     Route: 065
  16. LEUPROLIDE ACETATE [Concomitant]
     Active Substance: LEUPROLIDE ACETATE
     Indication: Product used for unknown indication
     Dosage: 11.25 MG (EVERY 3 MONTHS)
     Route: 065

REACTIONS (9)
  - Acute kidney injury [Recovering/Resolving]
  - Hydronephrosis [Recovered/Resolved]
  - Urinary retention [Recovered/Resolved]
  - Oedema peripheral [Not Recovered/Not Resolved]
  - Localised oedema [Unknown]
  - Anaemia [Not Recovered/Not Resolved]
  - Ureteritis [Recovered/Resolved]
  - Inferior vena caval occlusion [Unknown]
  - Lymphadenopathy [Unknown]

NARRATIVE: CASE EVENT DATE: 20250822
